FAERS Safety Report 7811148-3 (Version None)
Quarter: 2011Q4

REPORT INFORMATION
  Report Type: 
  Country: None (occurrence: None)
  Receive Date: 20111013
  Receipt Date: 20111005
  Transmission Date: 20120403
  Serious: Yes (Other)
  Sender: FDA-Public Use
  Company Number: JP-ASTELLAS-2011JP001827

PATIENT
  Age: 30 Year
  Sex: Female

DRUGS (18)
  1. PREDNISOLONE [Concomitant]
     Dosage: 10 MG, UNKNOWN/D
     Route: 065
  2. METHYLPREDNISOLONE [Concomitant]
     Dosage: 500 MG, UNKNOWN/D
     Route: 065
  3. METHYLPREDNISOLONE [Concomitant]
     Dosage: 500 MG, UNKNOWN/D
     Route: 065
  4. METHYLPREDNISOLONE [Concomitant]
     Indication: ACUTE GRAFT VERSUS HOST DISEASE
     Dosage: 250 MG, UNKNOWN/D
     Route: 065
     Dates: start: 20100901, end: 20100901
  5. METHYLPREDNISOLONE [Concomitant]
     Dosage: 250 MG, UNKNOWN/D
     Route: 065
  6. PROGRAF [Suspect]
     Indication: IMMUNOSUPPRESSANT DRUG THERAPY
     Dosage: UNK
     Route: 065
     Dates: end: 20101001
  7. METHYLPREDNISOLONE [Concomitant]
     Dosage: 1 G, UNKNOWN/D
     Route: 065
  8. PREDNISOLONE [Concomitant]
     Dosage: 7.5 MG, UNKNOWN/D
     Route: 065
  9. PREDNISOLONE [Concomitant]
     Dosage: 5 MG, UNKNOWN/D
     Route: 065
  10. METHYLPREDNISOLONE [Concomitant]
     Dosage: 250 MG, UNKNOWN/D
     Route: 065
  11. METHYLPREDNISOLONE [Concomitant]
     Dosage: 250 MG, UNKNOWN/D
     Route: 065
  12. PREDNISOLONE [Concomitant]
     Indication: IMMUNOSUPPRESSANT DRUG THERAPY
     Dosage: 10 MG, UNKNOWN/D
     Route: 065
  13. MYCOPHENOLATE MOFETIL [Concomitant]
     Indication: IMMUNOSUPPRESSANT DRUG THERAPY
     Dosage: 1000 MG, UNKNOWN/D
     Route: 065
     Dates: end: 20090601
  14. MYCOPHENOLATE MOFETIL [Concomitant]
     Dosage: 1000 MG, UNKNOWN/D
     Route: 065
  15. METHYLPREDNISOLONE [Concomitant]
     Dosage: 125 MG, UNKNOWN/D
     Route: 065
  16. PREDNISOLONE [Concomitant]
     Dosage: 15 MG, UNKNOWN/D
     Route: 065
  17. METHYLPREDNISOLONE [Concomitant]
     Dosage: 1 G, UNKNOWN/D
     Route: 065
  18. METHYLPREDNISOLONE [Concomitant]
     Dosage: 1 G, UNKNOWN/D
     Route: 065

REACTIONS (6)
  - APLASIA PURE RED CELL [None]
  - CYTOMEGALOVIRUS TEST POSITIVE [None]
  - ERYTHEMA INFECTIOSUM [None]
  - DRUG INEFFECTIVE [None]
  - ACUTE GRAFT VERSUS HOST DISEASE [None]
  - HYPERGLYCAEMIA [None]
